FAERS Safety Report 12124990 (Version 1)
Quarter: 2016Q1

REPORT INFORMATION
  Report Type: Report from Study
  Country: US (occurrence: US)
  Receive Date: 20160229
  Receipt Date: 20160229
  Transmission Date: 20160526
  Serious: Yes (Other)
  Sender: FDA-Public Use
  Company Number: US-AMGEN-USASL2016023986

PATIENT
  Age: 45 Year
  Sex: Female

DRUGS (1)
  1. ENBREL [Suspect]
     Active Substance: ETANERCEPT
     Indication: PSORIASIS
     Dosage: UNK UNK, QWK
     Route: 065

REACTIONS (7)
  - Abortion spontaneous [Unknown]
  - Agoraphobia [Unknown]
  - Psoriasis [Unknown]
  - Injection site urticaria [Unknown]
  - Tuberculosis [Unknown]
  - Hyperhidrosis [Unknown]
  - Injection site pruritus [Unknown]
